FAERS Safety Report 21126941 (Version 1)
Quarter: 2022Q3

REPORT INFORMATION
  Report Type: Spontaneous
  Country: US (occurrence: None)
  Receive Date: 20220725
  Receipt Date: 20220725
  Transmission Date: 20221027
  Serious: Yes (Other)
  Sender: FDA-Public Use
  Company Number: None

PATIENT
  Age: 41 Year
  Sex: Female
  Weight: 85.5 kg

DRUGS (1)
  1. SUBLOCADE [Suspect]
     Active Substance: BUPRENORPHINE
     Indication: Drug dependence
     Dosage: OTHER QUANTITY : 1 INJECTION(S);?OTHER FREQUENCY : 300MG X 30 DAYS;?
     Route: 058
     Dates: start: 20210930, end: 20211030

REACTIONS (2)
  - Injection site cyst [None]
  - Injection site pain [None]

NARRATIVE: CASE EVENT DATE: 20220401
